FAERS Safety Report 7381793-0 (Version None)
Quarter: 2011Q1

REPORT INFORMATION
  Report Type: 
  Country: None (occurrence: None)
  Receive Date: 20110329
  Receipt Date: 20110322
  Transmission Date: 20110831
  Serious: Yes (Hospitalization)
  Sender: FDA-Public Use
  Company Number: PL-ELI_LILLY_AND_COMPANY-PL201102001346

PATIENT
  Sex: Male
  Weight: 101 kg

DRUGS (7)
  1. HYDROCHLOROTHIAZIDE [Concomitant]
  2. NECITUMUMAB (11F8) (LY3012211) [Suspect]
     Indication: NON-SMALL CELL LUNG CANCER
     Dosage: 800 MG, OTHER
     Route: 042
     Dates: start: 20101014
  3. EUTHYROX [Concomitant]
  4. FRAGMIN [Concomitant]
     Indication: PROPHYLAXIS
  5. GEMCITABINE HYDROCHLORIDE [Suspect]
     Indication: NON-SMALL CELL LUNG CANCER
     Dosage: 2612 MG, OTHER
     Route: 042
     Dates: start: 20101014
  6. CISPLATIN [Suspect]
     Indication: NON-SMALL CELL LUNG CANCER
     Dosage: 157 MG, OTHER
     Route: 042
  7. FORADIL [Concomitant]

REACTIONS (1)
  - MYOCARDIAL INFARCTION [None]
